FAERS Safety Report 24087396 (Version 1)
Quarter: 2024Q3

REPORT INFORMATION
  Report Type: Spontaneous
  Country: GB (occurrence: GB)
  Receive Date: 20240714
  Receipt Date: 20240714
  Transmission Date: 20241017
  Serious: Yes (Disabling, Other)
  Sender: TORRENT
  Company Number: None

PATIENT
  Age: 38 Year
  Sex: Female

DRUGS (4)
  1. ARIPIPRAZOLE [Suspect]
     Active Substance: ARIPIPRAZOLE
     Indication: Obsessive-compulsive disorder
     Dosage: 5MG DAILY
     Route: 065
     Dates: start: 20110901, end: 20201201
  2. CALCIUM CARBONATE\CHOLECALCIFEROL [Concomitant]
     Active Substance: CALCIUM CARBONATE\CHOLECALCIFEROL
     Indication: Bone loss
     Dosage: UNKNOWN
     Route: 065
     Dates: start: 20110901
  3. HYDROXOCOBALAMIN [Concomitant]
     Active Substance: HYDROXOCOBALAMIN
     Indication: Fatigue
     Dosage: UNKNOWN
     Route: 065
     Dates: start: 20110901
  4. SERTRALINE [Concomitant]
     Active Substance: SERTRALINE HYDROCHLORIDE
     Indication: Obsessive-compulsive disorder
     Dosage: UNKNOWN
     Route: 065
     Dates: start: 20110901

REACTIONS (7)
  - Blepharospasm [Not Recovered/Not Resolved]
  - Muscle rigidity [Unknown]
  - Sleep disorder [Unknown]
  - Tremor [Unknown]
  - Muscle twitching [Unknown]
  - Photophobia [Unknown]
  - Drooling [Unknown]

NARRATIVE: CASE EVENT DATE: 20150601
